FAERS Safety Report 13243002 (Version 2)
Quarter: 2017Q1

REPORT INFORMATION
  Report Type: Spontaneous
  Country: IT (occurrence: IT)
  Receive Date: 20170217
  Receipt Date: 20170317
  Transmission Date: 20170428
  Serious: Yes (Other)
  Sender: FDA-Public Use
  Company Number: IT-BAYER-2016-212482

PATIENT
  Age: 75 Year
  Sex: Male

DRUGS (6)
  1. PARACETAMOL [Suspect]
     Active Substance: ACETAMINOPHEN
     Indication: BONE PAIN
  2. CODEINE [Suspect]
     Active Substance: CODEINE
     Indication: BONE PAIN
  3. RADIUM-223 DICHLORIDE [Suspect]
     Active Substance: RADIUM RA-223 DICHLORIDE
     Indication: SALIVARY GLAND CANCER
     Dosage: 50 KBQ,
     Dates: start: 201502, end: 201507
  4. SORAFENIB (RAF KINASE INHIBITOR) [Suspect]
     Active Substance: SORAFENIB
     Indication: SALIVARY GLAND CANCER
     Dosage: UNK
     Route: 048
     Dates: start: 2010
  5. RADIUM-223 DICHLORIDE [Suspect]
     Active Substance: RADIUM RA-223 DICHLORIDE
     Indication: METASTASES TO BONE
  6. ABIRATERONE [Concomitant]
     Active Substance: ABIRATERONE
     Indication: SALIVARY GLAND CANCER

REACTIONS (3)
  - Off label use [None]
  - Drug effect incomplete [None]
  - Cardiotoxicity [None]
